FAERS Safety Report 18764348 (Version 2)
Quarter: 2021Q1

REPORT INFORMATION
  Report Type: Spontaneous
  Country: US (occurrence: US)
  Receive Date: 20210120
  Receipt Date: 20210212
  Transmission Date: 20210419
  Serious: No
  Sender: FDA-Public Use
  Company Number: US-TEVA-2021-US-1870163

PATIENT
  Sex: Female

DRUGS (3)
  1. TRAZODONE HYDROCHLORIDE TEVA [Suspect]
     Active Substance: TRAZODONE HYDROCHLORIDE
     Indication: ANXIETY
  2. TRAZODONE HYDROCHLORIDE TEVA [Suspect]
     Active Substance: TRAZODONE HYDROCHLORIDE
     Indication: INSOMNIA
  3. TRAZODONE HYDROCHLORIDE TEVA [Suspect]
     Active Substance: TRAZODONE HYDROCHLORIDE
     Indication: DEPRESSION
     Dosage: SINCE LAST MANY YEARS
     Route: 065

REACTIONS (1)
  - Drug ineffective [Unknown]
